FAERS Safety Report 19503008 (Version 2)
Quarter: 2021Q3

REPORT INFORMATION
  Report Type: Spontaneous
  Country: DE (occurrence: DE)
  Receive Date: 20210707
  Receipt Date: 20210720
  Transmission Date: 20211014
  Serious: Yes (Other)
  Sender: FDA-Public Use
  Company Number: DE-BRISTOL-MYERS SQUIBB COMPANY-BMS-2021-042429

PATIENT
  Age: 69 Year
  Sex: Female
  Weight: 115 kg

DRUGS (2)
  1. ASA [Concomitant]
     Active Substance: ASPIRIN
     Indication: TRANSIENT ISCHAEMIC ATTACK
     Dosage: 100
     Route: 065
  2. ELIQUIS [Suspect]
     Active Substance: APIXABAN
     Indication: CEREBROVASCULAR ACCIDENT PROPHYLAXIS
     Dosage: 5 MILLIGRAM, BID
     Route: 065
     Dates: start: 202101

REACTIONS (17)
  - Peripheral swelling [Unknown]
  - Hypertension [Unknown]
  - Blood pressure abnormal [Not Recovered/Not Resolved]
  - Tooth disorder [Not Recovered/Not Resolved]
  - Contusion [Unknown]
  - Fall [Unknown]
  - Abdominal pain upper [Unknown]
  - Gait disturbance [Unknown]
  - Injection site haematoma [Recovering/Resolving]
  - Drug intolerance [Unknown]
  - Nausea [Unknown]
  - Headache [Unknown]
  - Limb injury [Unknown]
  - Hypotension [Unknown]
  - Jaw disorder [Unknown]
  - Burning sensation [Unknown]
  - Dizziness [Unknown]
